FAERS Safety Report 6474835-8 (Version None)
Quarter: 2009Q4

REPORT INFORMATION
  Report Type: 
  Country: None (occurrence: None)
  Receive Date: 20091204
  Receipt Date: 20090529
  Transmission Date: 20100525
  Serious: Yes (Hospitalization, Other)
  Sender: FDA-Public Use
  Company Number: US-ELI_LILLY_AND_COMPANY-US200902004760

PATIENT
  Age: 70 Year
  Sex: Female

DRUGS (5)
  1. BYETTA [Suspect]
     Indication: TYPE 2 DIABETES MELLITUS
     Route: 058
     Dates: start: 20070801, end: 20070801
  2. BYETTA [Suspect]
     Dosage: 5 UG, 2/D
     Route: 058
  3. BYETTA [Suspect]
     Dosage: 10 UG, 2/D
     Route: 058
  4. BYETTA [Suspect]
     Dosage: UNK, UNKNOWN
     Route: 058
  5. ORAL ANTIDIABETICS [Concomitant]

REACTIONS (1)
  - PEMPHIGOID [None]
